FAERS Safety Report 11344936 (Version 1)
Quarter: 2015Q3

REPORT INFORMATION
  Report Type: Spontaneous
  Country: US (occurrence: None)
  Receive Date: 20150805
  Receipt Date: 20150805
  Transmission Date: 20151125
  Serious: No
  Sender: FDA-Public Use
  Company Number: None

PATIENT
  Age: 59 Year
  Sex: Male
  Weight: 87.09 kg

DRUGS (5)
  1. ZOLOFT [Concomitant]
     Active Substance: SERTRALINE HYDROCHLORIDE
  2. MULTI- VITAMIN [Concomitant]
  3. BELSOMRA [Suspect]
     Active Substance: SUVOREXANT
     Indication: MIDDLE INSOMNIA
     Dosage: 1 PILL
     Route: 048
     Dates: start: 20150731, end: 20150801
  4. ZOLPIDEM [Concomitant]
     Active Substance: ZOLPIDEM\ZOLPIDEM TARTRATE
  5. BELSOMRA [Suspect]
     Active Substance: SUVOREXANT
     Indication: INSOMNIA
     Dosage: 1 PILL
     Route: 048
     Dates: start: 20150731, end: 20150801

REACTIONS (5)
  - Insomnia [None]
  - Feeling abnormal [None]
  - Abdominal discomfort [None]
  - Hallucination [None]
  - Mobility decreased [None]

NARRATIVE: CASE EVENT DATE: 20150731
